FAERS Safety Report 9115077 (Version 2)
Quarter: 2013Q2

REPORT INFORMATION
  Report Type: Spontaneous
  Country: BR (occurrence: BR)
  Receive Date: 20130225
  Receipt Date: 20130412
  Transmission Date: 20140414
  Serious: Yes (Other)
  Sender: FDA-Public Use
  Company Number: PHHY2013BR017606

PATIENT
  Sex: Female
  Weight: 49 kg

DRUGS (3)
  1. DIOVAN TRIPLE [Suspect]
     Indication: HYPERTENSION
     Dosage: 1 DF(160/5/12.5MG), A DAY
     Route: 048
  2. FORASEQ [Suspect]
     Indication: RESPIRATORY FAILURE
     Dosage: UNK (12/400UG), QD
  3. FORASEQ [Suspect]
     Dosage: 3 DF(12/400UG), A DAY

REACTIONS (9)
  - Abasia [Not Recovered/Not Resolved]
  - Increased bronchial secretion [Recovered/Resolved]
  - Dehydration [Not Recovered/Not Resolved]
  - Cough [Recovered/Resolved]
  - Fatigue [Not Recovered/Not Resolved]
  - Pruritus [Not Recovered/Not Resolved]
  - Hypertension [Unknown]
  - Pollakiuria [Not Recovered/Not Resolved]
  - Injury [Unknown]
